FAERS Safety Report 4653781-6 (Version None)
Quarter: 2005Q2

REPORT INFORMATION
  Report Type: 
  Country: None (occurrence: None)
  Receive Date: 20050504
  Receipt Date: 20050418
  Transmission Date: 20051028
  Serious: Yes (Life-Threatening)
  Sender: FDA-Public Use
  Company Number: 2005US000427

PATIENT
  Age: 4 Year
  Sex: Male
  Weight: 19.8 kg

DRUGS (2)
  1. PROTOPIC(TACROLIMS) OINTMENT, 0.1% [Suspect]
     Indication: ECZEMA
     Dosage: BID,TOPICAL
     Route: 061
  2. ELOCON [Suspect]
     Indication: ECZEMA

REACTIONS (1)
  - ACUTE LYMPHOCYTIC LEUKAEMIA [None]
